FAERS Safety Report 22832504 (Version 4)
Quarter: 2023Q4

REPORT INFORMATION
  Report Type: Spontaneous
  Country: CA (occurrence: CA)
  Receive Date: 20230817
  Receipt Date: 20231123
  Transmission Date: 20240110
  Serious: Yes (Other)
  Sender: FDA-Public Use
  Company Number: CA-PFIZER INC-202201262008

PATIENT
  Age: 52 Year
  Sex: Female

DRUGS (15)
  1. ABRILADA [Suspect]
     Active Substance: ADALIMUMAB-AFZB
     Indication: Crohn^s disease
     Dosage: 1 DF, WEEK 0: 160MG, WEEK2: 80 MG, 40 MG EOW STARTING WEEK 4
     Route: 058
     Dates: start: 20221012
  2. ABRILADA [Suspect]
     Active Substance: ADALIMUMAB-AFZB
     Dosage: 1 DF, WEEK 0: 160MG, WEEK2: 80 MG, 40 MG EOW STARTING WEEK 4
     Route: 058
     Dates: start: 20221026
  3. ABRILADA [Suspect]
     Active Substance: ADALIMUMAB-AFZB
     Dosage: 1 DF, WEEK 0: 160MG, WEEK2: 80 MG, 40 MG EOW STARTING WEEK 4
     Route: 058
     Dates: start: 20221122
  4. ABRILADA [Suspect]
     Active Substance: ADALIMUMAB-AFZB
     Dosage: 1 DF, WEEK 0: 160MG, WEEK2: 80 MG, 40 MG EOW STARTING WEEK 4
     Route: 058
     Dates: start: 20221206
  5. ABRILADA [Suspect]
     Active Substance: ADALIMUMAB-AFZB
     Dosage: 1 DF, WEEK 0: 160MG, WEEK2: 80 MG, 40 MG EOW STARTING WEEK 4
     Route: 058
     Dates: start: 20221221
  6. ABRILADA [Suspect]
     Active Substance: ADALIMUMAB-AFZB
     Dosage: 1 DF,  WEEK 0: 160MG, WEEK2: 80 MG, 40 MG EOW STARTING WEEK 4
     Route: 058
     Dates: start: 20230104
  7. ABRILADA [Suspect]
     Active Substance: ADALIMUMAB-AFZB
     Dosage: 1 DF,  WEEK 0: 160MG, WEEK2: 80 MG, 40 MG EOW STARTING WEEK 4
     Route: 058
     Dates: start: 20230118
  8. ABRILADA [Suspect]
     Active Substance: ADALIMUMAB-AFZB
     Dosage: 40 MG, MAINTENANCE EVERY OTHER WEEK
     Route: 058
     Dates: start: 20230201
  9. ABRILADA [Suspect]
     Active Substance: ADALIMUMAB-AFZB
     Dosage: 40 MG, MAINTENANCE EVERY OTHER WEEK
     Route: 058
     Dates: start: 20230329
  10. ABRILADA [Suspect]
     Active Substance: ADALIMUMAB-AFZB
     Dosage: 40 MG, AFTER Q 3 WEEKS AND 6 DAYS, SUPPOSED TO RECEIVE EVERY OTHER WEEK
     Route: 058
     Dates: start: 20230425
  11. ABRILADA [Suspect]
     Active Substance: ADALIMUMAB-AFZB
     Dosage: 1 DF, WEEK 0: 160MG, WEEK2: 80 MG, 40 MG EOW STARTING WEEK 4
     Route: 058
     Dates: start: 20230802
  12. ABRILADA [Suspect]
     Active Substance: ADALIMUMAB-AFZB
     Dosage: 1 DF, WEEK 0: 160MG, WEEK2: 80 MG, 40 MG EOW STARTING WEEK 4
     Route: 058
     Dates: start: 20230911
  13. ABRILADA [Suspect]
     Active Substance: ADALIMUMAB-AFZB
     Dosage: 1 DF,  WEEK 0: 160MG, WEEK2: 80 MG, 40 MG EOW STARTING WEEK 4
     Route: 058
     Dates: start: 20231017
  14. ABRILADA [Suspect]
     Active Substance: ADALIMUMAB-AFZB
     Dosage: 40 MG, AFTER 2 WEEKS
     Route: 058
     Dates: start: 20231031
  15. ABRILADA [Suspect]
     Active Substance: ADALIMUMAB-AFZB
     Dosage: 40 MG, (WEEK 0: 160MGWEEK2: 80 MG 40 MG EOW STARTING WEEK 4. PREFILLED PEN)
     Route: 058
     Dates: start: 20231115

REACTIONS (4)
  - Lyme disease [Recovered/Resolved]
  - Inappropriate schedule of product administration [Unknown]
  - Condition aggravated [Recovered/Resolved]
  - Condition aggravated [Recovered/Resolved]

NARRATIVE: CASE EVENT DATE: 20221026
